FAERS Safety Report 4892200-1 (Version None)
Quarter: 2006Q1

REPORT INFORMATION
  Report Type: 
  Country: None (occurrence: None)
  Receive Date: 20060125
  Receipt Date: 20060125
  Transmission Date: 20060701
  Serious: Yes (Hospitalization)
  Sender: FDA-Public Use
  Company Number: None

PATIENT
  Sex: Male
  Weight: 151.955 kg

DRUGS (7)
  1. GENTAMICIN [Suspect]
     Indication: CELLULITIS
     Dosage: 550MG Q48H IV
     Route: 042
     Dates: start: 20060105, end: 20060115
  2. ZOCOR [Concomitant]
  3. PREDNISONE [Concomitant]
  4. PROTONIX [Concomitant]
  5. MS CONTIN [Concomitant]
  6. METOCLOPRAMIDE [Concomitant]
  7. FUROSEMIDE [Concomitant]

REACTIONS (1)
  - RENAL IMPAIRMENT [None]
